FAERS Safety Report 26068128 (Version 2)
Quarter: 2025Q4

REPORT INFORMATION
  Report Type: Spontaneous
  Country: EU (occurrence: EU)
  Receive Date: 20251120
  Receipt Date: 20251125
  Transmission Date: 20260118
  Serious: Yes (Other)
  Sender: TEVA
  Company Number: EU-TEVA-VS-3393075

PATIENT
  Age: 21 Year
  Sex: Female

DRUGS (5)
  1. METHOTREXATE [Suspect]
     Active Substance: METHOTREXATE
     Indication: Myasthenic syndrome
     Route: 065
  2. AMIFAMPRIDINE [Concomitant]
     Active Substance: AMIFAMPRIDINE
     Indication: Myasthenic syndrome
  3. PREDNISOLONE [Suspect]
     Active Substance: PREDNISOLONE
     Indication: Myasthenic syndrome
     Route: 065
  4. IMMUNE GLOBULIN NOS [Concomitant]
     Active Substance: IMMUNE GLOBULIN NOS
     Indication: Myasthenic syndrome
     Route: 042
  5. PYRIDOSTIGMINE [Concomitant]
     Active Substance: PYRIDOSTIGMINE
     Indication: Myasthenic syndrome

REACTIONS (1)
  - Substance-induced psychotic disorder [Not Recovered/Not Resolved]
